FAERS Safety Report 19721764 (Version 1)
Quarter: 2021Q3

REPORT INFORMATION
  Report Type: Report from Study
  Country: CN (occurrence: CN)
  Receive Date: 20210818
  Receipt Date: 20210818
  Transmission Date: 20211014
  Serious: Yes (Hospitalization)
  Sender: FDA-Public Use
  Company Number: CN-MACROGENICS-2021000206

PATIENT
  Age: 73 Year
  Sex: Male
  Weight: 44.5 kg

DRUGS (15)
  1. OXALIPLATIN. [Concomitant]
     Active Substance: OXALIPLATIN
     Indication: GASTRIC CANCER
     Dosage: 195 MILLIGRAM, Q3WEEKS
     Route: 042
     Dates: start: 20210618, end: 20210618
  2. OMEPRAZOLE SODIUM [Concomitant]
     Active Substance: OMEPRAZOLE SODIUM
     Indication: GASTRITIS PROPHYLAXIS
     Dosage: 40 MILLIGRAM, QD
     Route: 041
     Dates: start: 20210714, end: 20210714
  3. MAGNESIUM ISOGLYCYRRHIZINATE [Concomitant]
     Active Substance: MAGNESIUM ISOGLYCYRRHIZINATE
     Indication: PROPHYLAXIS
     Dosage: 150 MILLIGRAM, QD
     Route: 041
     Dates: start: 20210713, end: 20210714
  4. GLUTATHIONE [Concomitant]
     Active Substance: GLUTATHIONE
     Indication: PROPHYLAXIS
     Dosage: 2.4 GRAM, QD
     Route: 041
     Dates: start: 20210713, end: 20210713
  5. MUCOPOLYSACCHARIDE POLYSULFATE [Concomitant]
     Indication: PHLEBITIS
     Dosage: 1 DOSAGE FORM, QD
     Route: 003
     Dates: start: 20210714
  6. CIMETIDINE [Concomitant]
     Active Substance: CIMETIDINE
     Indication: PREMEDICATION
     Dosage: 0.4 GRAM, QD
     Route: 041
     Dates: start: 20210713, end: 20210713
  7. RETIFANLIMAB. [Suspect]
     Active Substance: RETIFANLIMAB
     Dosage: 375 MILLIGRAM, Q3WEEKS
     Route: 042
     Dates: start: 20210713, end: 20210713
  8. RETIFANLIMAB. [Suspect]
     Active Substance: RETIFANLIMAB
     Indication: GASTRIC CANCER
     Dosage: 375 MILLIGRAM, Q3WEEKS
     Route: 042
     Dates: start: 20210618, end: 20210618
  9. ONDANSETRON HYDROCHLORIDE. [Concomitant]
     Active Substance: ONDANSETRON HYDROCHLORIDE
     Indication: PROPHYLAXIS OF NAUSEA AND VOMITING
     Dosage: 4 MILLIGRAM, BID
     Route: 048
     Dates: start: 20210714, end: 20210714
  10. MARGETUXIMAB. [Suspect]
     Active Substance: MARGETUXIMAB
     Dosage: 15 MILLIGRAM/KILOGRAM, Q3WEEKS
     Route: 065
     Dates: start: 20210713, end: 20210713
  11. PALONOSETRON HYDROCHLORIDE. [Concomitant]
     Active Substance: PALONOSETRON HYDROCHLORIDE
     Indication: PROPHYLAXIS OF NAUSEA AND VOMITING
     Dosage: .25 MILLIGRAM, QD
     Route: 041
     Dates: start: 20210713, end: 20210714
  12. MARGETUXIMAB. [Suspect]
     Active Substance: MARGETUXIMAB
     Indication: GASTRIC CANCER
     Dosage: 15 MILLIGRAM/KILOGRAM, Q3WEEKS
     Route: 042
     Dates: start: 20210618, end: 20210618
  13. DIAMMONIUM GLYCYRRHIZINATE [Concomitant]
     Active Substance: HERBALS\DIAMMONIUM GLYCYRRHIZINATE
     Indication: PROPHYLAXIS
     Dosage: 100 MILLIGRAM, QD
     Route: 048
     Dates: start: 20210714
  14. DEXAMETHASONE SODIUM PHOSPHATE. [Concomitant]
     Active Substance: DEXAMETHASONE SODIUM PHOSPHATE
     Indication: PREMEDICATION
     Dosage: 20 MILLIGRAM, QD
     Route: 041
     Dates: start: 20210713, end: 20210714
  15. DIPHENHYDRAMINE HYDROCHLORIDE. [Concomitant]
     Active Substance: DIPHENHYDRAMINE HYDROCHLORIDE
     Indication: PREMEDICATION
     Dosage: 50 MILLIGRAM, QD
     Route: 030
     Dates: start: 20210713, end: 20210713

REACTIONS (1)
  - Thyroiditis subacute [Not Recovered/Not Resolved]

NARRATIVE: CASE EVENT DATE: 20210804
